FAERS Safety Report 15762198 (Version 2)
Quarter: 2019Q1

REPORT INFORMATION
  Report Type: Spontaneous
  Country: JP (occurrence: JP)
  Receive Date: 20181226
  Receipt Date: 20190118
  Transmission Date: 20190417
  Serious: Yes (Death, Hospitalization)
  Sender: FDA-Public Use
  Company Number: JP-NAPPMUNDI-GBR-2018-0059358

PATIENT
  Age: 73 Year
  Sex: Male

DRUGS (5)
  1. ATARAX-P                           /00058402/ [Suspect]
     Active Substance: HYDROXYZINE HYDROCHLORIDE
     Indication: DELIRIUM
     Dosage: 25 MG, DAILY
     Route: 041
     Dates: start: 20180826, end: 20180826
  2. OXYCONTIN [Suspect]
     Active Substance: OXYCODONE HYDROCHLORIDE
     Indication: CHEST PAIN
  3. OXINORM (OXYCODONE HYDROCHLORIDE) [Suspect]
     Active Substance: OXYCODONE HYDROCHLORIDE
     Indication: DYSPNOEA
     Dosage: 2.5 MG, QD PRN (APPROXIMATELY ONCE DAILY)
     Route: 048
     Dates: start: 20180818, end: 20180826
  4. OXINORM (OXYCODONE HYDROCHLORIDE) [Suspect]
     Active Substance: OXYCODONE HYDROCHLORIDE
     Indication: CHEST PAIN
  5. OXYCONTIN [Suspect]
     Active Substance: OXYCODONE HYDROCHLORIDE
     Indication: DYSPNOEA
     Dosage: 5 MG, Q12H
     Route: 048
     Dates: start: 20180818, end: 20180826

REACTIONS (1)
  - Sedation complication [Fatal]

NARRATIVE: CASE EVENT DATE: 20180826
